FAERS Safety Report 11622099 (Version 1)
Quarter: 2015Q4

REPORT INFORMATION
  Report Type: Spontaneous
  Country: US (occurrence: US)
  Receive Date: 20151013
  Receipt Date: 20151013
  Transmission Date: 20160304
  Serious: No
  Sender: FDA-Public Use
  Company Number: US-JNJFOC-20150319553

PATIENT
  Age: 65 Year
  Sex: Female
  Weight: 80.74 kg

DRUGS (1)
  1. TYLENOL EXTRA STRENGTH [Suspect]
     Active Substance: ACETAMINOPHEN
     Indication: HEADACHE
     Dosage: DAILY FOR 12 YEARS
     Route: 048

REACTIONS (1)
  - Intentional product use issue [Unknown]
